FAERS Safety Report 5799355-5 (Version None)
Quarter: 2008Q3

REPORT INFORMATION
  Report Type: 
  Country: None (occurrence: None)
  Receive Date: 20080702
  Receipt Date: 20080623
  Transmission Date: 20090109
  Serious: Yes (Other)
  Sender: FDA-Public Use
  Company Number: US-PFIZER INC-2008053266

PATIENT
  Sex: Female
  Weight: 81.818 kg

DRUGS (9)
  1. CHANTIX [Suspect]
     Indication: SMOKING CESSATION THERAPY
     Dates: start: 20080601, end: 20080620
  2. ALPRAZOLAM [Interacting]
     Indication: BIPOLAR I DISORDER
  3. TEGRETOL [Concomitant]
  4. AMITRIPTYLINE HCL [Concomitant]
  5. VICODIN [Concomitant]
  6. EFFEXOR [Concomitant]
  7. TRAZODONE HCL [Concomitant]
  8. RANITIDINE HCL [Concomitant]
  9. CARBAMAZEPINE [Concomitant]

REACTIONS (2)
  - CONVULSION [None]
  - VIOLENCE-RELATED SYMPTOM [None]
